FAERS Safety Report 4707336-5 (Version None)
Quarter: 2005Q3

REPORT INFORMATION
  Report Type: 
  Country: None (occurrence: None)
  Receive Date: 20050701
  Receipt Date: 20050701
  Transmission Date: 20060218
  Serious: Yes (Hospitalization, Other)
  Sender: FDA-Public Use
  Company Number: None

PATIENT
  Sex: Male
  Weight: 73.2 kg

DRUGS (3)
  1. CISPLATIN [Suspect]
     Indication: NASOPHARYNGEAL CANCER
     Dosage: 100 MG/M2 DAYS 1,22 AND 43
     Route: 042
     Dates: start: 20050223, end: 20050504
  2. FLUOROURACIL [Suspect]
     Dosage: 1000MG/M2 (96HR. CONTINUAL INFUSION) ON DAYS 71-74,99-102,127-130
     Route: 042
     Dates: start: 20050504, end: 20050505
  3. RADIATION [Suspect]

REACTIONS (2)
  - HEPATITIS B [None]
  - HEPATITIS B SURFACE ANTIGEN POSITIVE [None]
